FAERS Safety Report 7279065-8 (Version None)
Quarter: 2011Q1

REPORT INFORMATION
  Report Type: 
  Country: None (occurrence: None)
  Receive Date: 20110207
  Receipt Date: 20110201
  Transmission Date: 20110831
  Serious: Yes (Death)
  Sender: FDA-Public Use
  Company Number: PHHY2011US02718

PATIENT
  Sex: Female
  Weight: 46.7 kg

DRUGS (12)
  1. METOPROLOL TARTRATE [Concomitant]
     Indication: CORONARY ARTERY DISEASE
     Dosage: 12.5 MG, BID
     Route: 048
     Dates: start: 20050301
  2. WARFARIN [Concomitant]
     Indication: ATRIAL FIBRILLATION
     Dosage: UNK
     Route: 048
     Dates: start: 20050101
  3. TAGAMET [Concomitant]
     Dosage: UNK
  4. NIACIN [Concomitant]
     Dosage: 500 MG, BID
  5. ASPIRIN [Concomitant]
     Indication: CORONARY ARTERY DISEASE
     Dosage: 81 MG, UNK
     Route: 048
     Dates: start: 20050301
  6. SYNTHROID [Concomitant]
     Route: 048
  7. OXYBUTYNIN [Concomitant]
     Dosage: UNK
  8. COLACE [Concomitant]
     Dosage: 100 MG, BID
  9. DIOVAN [Suspect]
     Indication: HYPERTENSION
     Dosage: 160 MG, UNK
     Route: 048
     Dates: start: 20060201
  10. DIOVAN [Suspect]
     Indication: CARDIAC FAILURE
  11. METOPROLOL TARTRATE [Concomitant]
     Indication: HYPERTENSION
  12. MULTI-VITAMINS [Concomitant]
     Dosage: UNK

REACTIONS (1)
  - DEATH [None]
